FAERS Safety Report 6091909-4 (Version None)
Quarter: 2009Q1

REPORT INFORMATION
  Report Type: 
  Country: None (occurrence: None)
  Receive Date: 20090225
  Receipt Date: 20080925
  Transmission Date: 20090719
  Serious: No
  Sender: FDA-Public Use
  Company Number: A0749243A

PATIENT
  Age: 28 Year
  Sex: Female

DRUGS (3)
  1. VALTREX [Suspect]
     Dosage: 1G FOUR TIMES PER DAY
     Route: 048
     Dates: start: 20080917, end: 20080923
  2. ORAL CONTRACEPTIVE PILLS [Concomitant]
  3. ZOLOFT [Concomitant]

REACTIONS (6)
  - ABDOMINAL PAIN UPPER [None]
  - HEADACHE [None]
  - INCORRECT DOSE ADMINISTERED [None]
  - NAUSEA [None]
  - URINE OUTPUT DECREASED [None]
  - VOMITING [None]
